FAERS Safety Report 7777351-6 (Version None)
Quarter: 2011Q3

REPORT INFORMATION
  Report Type: 
  Country: None (occurrence: None)
  Receive Date: 20110926
  Receipt Date: 20110913
  Transmission Date: 20111222
  Serious: Yes (Disabling)
  Sender: FDA-Public Use
  Company Number: GB-JNJFOC-20101105133

PATIENT
  Age: 87 Year
  Sex: Male
  Weight: 61.3 kg

DRUGS (8)
  1. DUTASTERIDE [Concomitant]
  2. CO-BENELDOPA [Concomitant]
  3. VALPROIC ACID [Concomitant]
  4. SIMVASTATIN [Concomitant]
  5. ASPIRIN [Concomitant]
  6. ENTACAPONE [Concomitant]
  7. TRAMADOL HCL [Suspect]
     Indication: NECK PAIN
     Route: 048
     Dates: start: 20100801, end: 20100901
  8. CITALOPRAM [Concomitant]

REACTIONS (3)
  - GAIT DISTURBANCE [None]
  - MOBILITY DECREASED [None]
  - TREMOR [None]
